FAERS Safety Report 13946097 (Version 1)
Quarter: 2017Q3

REPORT INFORMATION
  Report Type: Report from Study
  Country: IT (occurrence: IT)
  Receive Date: 20170907
  Receipt Date: 20170907
  Transmission Date: 20171128
  Serious: Yes (Hospitalization, Other)
  Sender: FDA-Public Use
  Company Number: IT-ACCORD-058071

PATIENT
  Age: 43 Year
  Sex: Male

DRUGS (4)
  1. SERTRALINE [Suspect]
     Active Substance: SERTRALINE HYDROCHLORIDE
     Indication: ANTIDEPRESSANT THERAPY
  2. NIMESULIDE/NIMESULIDE BETA-CYCLODEXTRINE [Concomitant]
  3. LOPERAMIDE [Concomitant]
     Active Substance: LOPERAMIDE
  4. IBUPROFEN. [Concomitant]
     Active Substance: IBUPROFEN

REACTIONS (1)
  - Liver injury [Unknown]
